FAERS Safety Report 25250617 (Version 2)
Quarter: 2025Q3

REPORT INFORMATION
  Report Type: Spontaneous
  Country: GB (occurrence: GB)
  Receive Date: 20250429
  Receipt Date: 20250714
  Transmission Date: 20251020
  Serious: Yes (Hospitalization, Other)
  Sender: INSUD PHARMA
  Company Number: GB-002147023-NVSC2024GB158532

PATIENT
  Sex: Female

DRUGS (2)
  1. FULVESTRANT [Suspect]
     Active Substance: FULVESTRANT
     Indication: Product used for unknown indication
     Route: 065
  2. KISQALI [Suspect]
     Active Substance: RIBOCICLIB SUCCINATE
     Indication: Product used for unknown indication
     Route: 065

REACTIONS (19)
  - Infection [Unknown]
  - Lower respiratory tract infection [Unknown]
  - Fall [Unknown]
  - Joint dislocation [Unknown]
  - Confusional state [Unknown]
  - Urine odour abnormal [Unknown]
  - Feeling abnormal [Unknown]
  - Abdominal pain [Unknown]
  - Vision blurred [Unknown]
  - Headache [Unknown]
  - Dizziness [Unknown]
  - Malaise [Unknown]
  - Head discomfort [Unknown]
  - Influenza [Unknown]
  - Somnolence [Unknown]
  - Lethargy [Unknown]
  - Pain in extremity [Unknown]
  - Nausea [Unknown]
  - Disease progression [Unknown]
